FAERS Safety Report 23104235 (Version 3)
Quarter: 2023Q4

REPORT INFORMATION
  Report Type: Spontaneous
  Country: JP (occurrence: JP)
  Receive Date: 20231025
  Receipt Date: 20231120
  Transmission Date: 20240110
  Serious: Yes (Death)
  Sender: FDA-Public Use
  Company Number: JP-JNJFOC-20231054115

PATIENT
  Age: 90 Year
  Sex: Male
  Weight: 50.4 kg

DRUGS (9)
  1. OPSUMIT [Suspect]
     Active Substance: MACITENTAN
     Indication: Pulmonary arterial hypertension
     Route: 048
     Dates: start: 20180205
  2. OPSUMIT [Suspect]
     Active Substance: MACITENTAN
     Route: 048
     Dates: start: 20201028, end: 20231018
  3. UPTRAVI [Suspect]
     Active Substance: SELEXIPAG
     Indication: Pulmonary arterial hypertension
     Dosage: 0.4 MG (0.2 MG/12 HOURS)
     Route: 048
     Dates: start: 20180209, end: 20180217
  4. UPTRAVI [Suspect]
     Active Substance: SELEXIPAG
     Dosage: 0.8 MG (0.4 MG/12 HOURS)
     Route: 048
     Dates: start: 20180218, end: 20180722
  5. UPTRAVI [Suspect]
     Active Substance: SELEXIPAG
     Dosage: 1.2 MG (0.6 MG/12 HOURS)
     Route: 048
     Dates: start: 20180723, end: 20180819
  6. UPTRAVI [Suspect]
     Active Substance: SELEXIPAG
     Dosage: 1.6 MG (0.8 MG/12 HOURS)
     Route: 048
     Dates: start: 20180820
  7. RIOCIGUAT [Suspect]
     Active Substance: RIOCIGUAT
     Indication: Pulmonary arterial hypertension
     Route: 048
     Dates: start: 20180202, end: 20180213
  8. RIOCIGUAT [Suspect]
     Active Substance: RIOCIGUAT
     Route: 048
     Dates: start: 20180214
  9. AZOSEMIDE [Concomitant]
     Active Substance: AZOSEMIDE
     Dates: start: 20180425

REACTIONS (1)
  - Pulmonary arterial hypertension [Fatal]
